FAERS Safety Report 6873190-9 (Version None)
Quarter: 2010Q3

REPORT INFORMATION
  Report Type: 
  Country: None (occurrence: None)
  Receive Date: 20100723
  Receipt Date: 20081203
  Transmission Date: 20110219
  Serious: No
  Sender: FDA-Public Use
  Company Number: US-PFIZER INC-2008152535

PATIENT
  Sex: Male
  Weight: 77 kg

DRUGS (4)
  1. CHANTIX [Suspect]
     Indication: SMOKING CESSATION THERAPY
     Dosage: UNK
     Dates: start: 20080601
  2. TYLENOL PM [Suspect]
     Indication: INSOMNIA
  3. PROZAC [Suspect]
     Dosage: UNK
  4. BENADRYL [Suspect]

REACTIONS (6)
  - DIPLOPIA [None]
  - DRUG INTOLERANCE [None]
  - DRY EYE [None]
  - EYE IRRITATION [None]
  - INSOMNIA [None]
  - VISION BLURRED [None]
